FAERS Safety Report 7366171-2 (Version None)
Quarter: 2011Q1

REPORT INFORMATION
  Report Type: 
  Country: None (occurrence: None)
  Receive Date: 20110322
  Receipt Date: 20110309
  Transmission Date: 20110831
  Serious: Yes (Other)
  Sender: FDA-Public Use
  Company Number: FR-SANOFI-AVENTIS-2011SA014778

PATIENT

DRUGS (2)
  1. MULTAQ [Suspect]
  2. CORDARONE [Concomitant]

REACTIONS (1)
  - INTERSTITIAL LUNG DISEASE [None]
